FAERS Safety Report 7192573-3 (Version None)
Quarter: 2010Q4

REPORT INFORMATION
  Report Type: 
  Country: None (occurrence: None)
  Receive Date: 20101223
  Receipt Date: 20101216
  Transmission Date: 20110411
  Serious: Yes (Life-Threatening)
  Sender: FDA-Public Use
  Company Number: US-PFIZER INC-2010174579

PATIENT
  Sex: Male

DRUGS (3)
  1. SUTENT [Suspect]
     Indication: RENAL CELL CARCINOMA
  2. NEXAVAR [Suspect]
     Indication: RENAL CELL CARCINOMA
  3. PLACEBO [Suspect]
     Indication: RENAL CELL CARCINOMA

REACTIONS (2)
  - SEPSIS [None]
  - THROMBOSIS [None]
